FAERS Safety Report 4698870-5 (Version None)
Quarter: 2005Q2

REPORT INFORMATION
  Report Type: 
  Country: None (occurrence: None)
  Receive Date: 20050624
  Receipt Date: 20050620
  Transmission Date: 20051028
  Serious: Yes (Other)
  Sender: FDA-Public Use
  Company Number: PHFR2005GB02207

PATIENT
  Age: 48 Year
  Sex: Female

DRUGS (2)
  1. TERBINAFINE [Suspect]
     Dosage: 250MG/DAY
     Route: 048
  2. TRANEXAMIC ACID [Concomitant]
     Indication: MENORRHAGIA
     Dosage: 2 UNK, QID
     Route: 048

REACTIONS (3)
  - PHOTOSENSITIVITY REACTION [None]
  - RASH MACULAR [None]
  - RASH PRURITIC [None]
